FAERS Safety Report 17307275 (Version 1)
Quarter: 2020Q1

REPORT INFORMATION
  Report Type: Spontaneous
  Country: CA (occurrence: CA)
  Receive Date: 20200123
  Receipt Date: 20200123
  Transmission Date: 20200409
  Serious: Yes (Hospitalization, Disabling, Other)
  Sender: FDA-Public Use
  Company Number: CA-TEVA-2020-CA-1172060

PATIENT
  Age: 18 Year
  Sex: Male
  Weight: 55 kg

DRUGS (75)
  1. CEPHALEXIN [CEFALEXIN] [Concomitant]
     Active Substance: CEPHALEXIN
  2. CHOLECALCIFEROL [Concomitant]
     Active Substance: CHOLECALCIFEROL
  3. CIPROFLOXACIN. [Concomitant]
     Active Substance: CIPROFLOXACIN
  4. CYTARABINE. [Concomitant]
     Active Substance: CYTARABINE
  5. DESIPRAMINE [Concomitant]
     Active Substance: DESIPRAMINE
  6. LANSOPRAZOLE. [Concomitant]
     Active Substance: LANSOPRAZOLE
  7. TIMENTIN [TIMOLOL MALEATE] [Concomitant]
     Active Substance: TIMOLOL MALEATE
  8. DAUNORUBICIN HYDROCHLORIDE. [Suspect]
     Active Substance: DAUNORUBICIN HYDROCHLORIDE
     Indication: ACUTE MYELOID LEUKAEMIA
     Dosage: 82 MILLIGRAM DAILY;
     Route: 042
  9. ALTEPLASE. [Concomitant]
     Active Substance: ALTEPLASE
  10. AMLODIPINE [Concomitant]
     Active Substance: AMLODIPINE BESYLATE
  11. CLARITHROMYCIN. [Concomitant]
     Active Substance: CLARITHROMYCIN
  12. CYCLOSPORIN SANDOZ [Concomitant]
     Active Substance: CYCLOSPORINE
  13. FLUDARABINE [Concomitant]
     Active Substance: FLUDARABINE PHOSPHATE
  14. HYDROMORPHONE [Concomitant]
     Active Substance: HYDROMORPHONE
  15. MELATONIN [Concomitant]
     Active Substance: MELATONIN
  16. MIRTAZAPINE. [Concomitant]
     Active Substance: MIRTAZAPINE
  17. POTASSIUM CHLORIDE. [Concomitant]
     Active Substance: POTASSIUM CHLORIDE
  18. PREDNISONE. [Concomitant]
     Active Substance: PREDNISONE
  19. ZOPICLONE [Concomitant]
     Active Substance: ZOPICLONE
  20. AMITRIPTYLINE [Concomitant]
     Active Substance: AMITRIPTYLINE
  21. CODEINE [Concomitant]
     Active Substance: CODEINE
  22. ETOPOSIDE. [Concomitant]
     Active Substance: ETOPOSIDE
  23. FASTURTEC [Concomitant]
     Active Substance: RASBURICASE
  24. HYDROCORTISONE. [Concomitant]
     Active Substance: HYDROCORTISONE
  25. HYDROXYZINE [Concomitant]
     Active Substance: HYDROXYZINE HYDROCHLORIDE
  26. METHOTREXATE. [Concomitant]
     Active Substance: METHOTREXATE
  27. METHYLPREDNISOLONE. [Concomitant]
     Active Substance: METHYLPREDNISOLONE
  28. ONDANSETRON [Concomitant]
     Active Substance: ONDANSETRON
  29. SPIRONOLACTONE. [Concomitant]
     Active Substance: SPIRONOLACTONE
  30. AMPHOTERICIN B. [Concomitant]
     Active Substance: AMPHOTERICIN B
  31. DOCUSATE [Concomitant]
     Active Substance: DOCUSATE
  32. LEUCOVORIN [FOLINIC ACID [Concomitant]
  33. LOSARTAN. [Concomitant]
     Active Substance: LOSARTAN
  34. MAGNESIUM [Concomitant]
     Active Substance: MAGNESIUM
  35. MORPHINE SULFATE. [Concomitant]
     Active Substance: MORPHINE SULFATE
  36. NIFEDIPINE. [Concomitant]
     Active Substance: NIFEDIPINE
  37. CYCLOPHOSPHAMIDE. [Concomitant]
     Active Substance: CYCLOPHOSPHAMIDE
  38. GABAPENTIN. [Concomitant]
     Active Substance: GABAPENTIN
  39. LEVOFLOXACIN. [Concomitant]
     Active Substance: LEVOFLOXACIN
  40. NAPROXEN. [Concomitant]
     Active Substance: NAPROXEN
  41. PREGABALIN. [Concomitant]
     Active Substance: PREGABALIN
  42. RELENZA [Concomitant]
     Active Substance: ZANAMIVIR
  43. TICARCILLIN [Concomitant]
     Active Substance: TICARCILLIN
  44. ZINECARD DEXRAZOXANE] [Concomitant]
  45. ALLOPURINOL. [Concomitant]
     Active Substance: ALLOPURINOL
  46. DIGOXIN. [Concomitant]
     Active Substance: DIGOXIN
  47. FAMCICLOVIR. [Concomitant]
     Active Substance: FAMCICLOVIR
  48. INSULIN [Concomitant]
     Active Substance: INSULIN NOS
  49. MYCOPHENOLATE MOFETIL. [Concomitant]
     Active Substance: MYCOPHENOLATE MOFETIL
  50. NEUPOGEN [Concomitant]
     Active Substance: FILGRASTIM
  51. VANCOMYCIN [Concomitant]
     Active Substance: VANCOMYCIN
  52. ACYCLOVIR. [Concomitant]
     Active Substance: ACYCLOVIR
  53. CASPOFUNGIN ACETATE. [Concomitant]
     Active Substance: CASPOFUNGIN ACETATE
  54. CETIRIZINE [Concomitant]
     Active Substance: CETIRIZINE HYDROCHLORIDE
  55. CICLOSPORIN [Concomitant]
     Active Substance: CYCLOSPORINE
  56. MEROPENEM. [Concomitant]
     Active Substance: MEROPENEM
  57. PIPERACILLIN AND TAZOBACTAM [Concomitant]
     Active Substance: PIPERACILLIN SODIUM\TAZOBACTAM SODIUM
  58. RANITIDINE. [Concomitant]
     Active Substance: RANITIDINE
  59. TAMIFLU [Concomitant]
     Active Substance: OSELTAMIVIR PHOSPHATE
  60. URSODEOXYCHOLIC ACID [Concomitant]
     Active Substance: URSODIOL
  61. MITOXANTRONE HYDROCHLORIDE. [Suspect]
     Active Substance: MITOXANTRONE HYDROCHLORIDE
     Indication: ACUTE MYELOID LEUKAEMIA
     Route: 042
  62. ACETAMINOPHEN. [Concomitant]
     Active Substance: ACETAMINOPHEN
  63. CEFAZOLIN [Concomitant]
     Active Substance: CEFAZOLIN
  64. CEFTAZIDIME. [Concomitant]
     Active Substance: CEFTAZIDIME
  65. FLUCONAZOLE. [Concomitant]
     Active Substance: FLUCONAZOLE
  66. MAGNESIUM SULFATE. [Concomitant]
     Active Substance: MAGNESIUM SULFATE
  67. MESNA. [Concomitant]
     Active Substance: MESNA
  68. NYSTATIN. [Concomitant]
     Active Substance: NYSTATIN
  69. OMEPRAZOLE. [Concomitant]
     Active Substance: OMEPRAZOLE
  70. PENTAMIDINE [Concomitant]
     Active Substance: PENTAMIDINE
  71. QUETIAPINE. [Concomitant]
     Active Substance: QUETIAPINE
  72. TACROLIMUS. [Concomitant]
     Active Substance: TACROLIMUS
  73. TOBRAMYCIN. [Concomitant]
     Active Substance: TOBRAMYCIN
  74. TRIMETHOPRIM SULFAMETHOXAZOLE [Concomitant]
     Active Substance: SULFAMETHOXAZOLE\TRIMETHOPRIM
  75. VORICONAZOLE. [Concomitant]
     Active Substance: VORICONAZOLE

REACTIONS (5)
  - Congestive cardiomyopathy [Unknown]
  - Diastolic dysfunction [Unknown]
  - Tachycardia [Unknown]
  - Systolic dysfunction [Unknown]
  - Dyspnoea exertional [Unknown]
